FAERS Safety Report 23760296 (Version 1)
Quarter: 2024Q2

REPORT INFORMATION
  Report Type: Spontaneous
  Country: ES (occurrence: ES)
  Receive Date: 20240419
  Receipt Date: 20240419
  Transmission Date: 20240716
  Serious: Yes (Other)
  Sender: FDA-Public Use
  Company Number: None

PATIENT
  Age: 72 Year
  Sex: Female

DRUGS (6)
  1. BROMFENAC SODIUM [Suspect]
     Active Substance: BROMFENAC SODIUM
     Indication: Surgery
     Dosage: 0.9 MG/ML EYEWARE SOLUTION, 1 BOTTLE OF 5 ML
     Route: 050
     Dates: start: 20240219, end: 20240329
  2. METFORMINA CINFA [Concomitant]
     Indication: Product used for unknown indication
     Dosage: 50 TABLETS
     Route: 048
     Dates: start: 20170710
  3. TOBRADEX [Concomitant]
     Active Substance: DEXAMETHASONE\TOBRAMYCIN
     Indication: Surgery
     Dosage: 1 MG/ML + 3 MG/ML EYEWARE SUSPENSION, 1 BOTTLE OF 5 ML
     Route: 047
     Dates: start: 20240219, end: 20240319
  4. CALCIUM CARBONATE\CHOLECALCIFEROL [Concomitant]
     Active Substance: CALCIUM CARBONATE\CHOLECALCIFEROL
     Indication: Product used for unknown indication
     Dosage: 500 MG/400 IU CHEWABLE TABLETS, 60 TABLETS
     Route: 048
     Dates: start: 20120531
  5. LORAZEPAM [Concomitant]
     Active Substance: LORAZEPAM
     Indication: Product used for unknown indication
     Dosage: 1 MG TABLETS, 50 TABLETS
     Route: 048
     Dates: start: 20170704
  6. LOSARTAN POTASSIUM [Concomitant]
     Active Substance: LOSARTAN POTASSIUM
     Indication: Product used for unknown indication
     Dosage: 100 MG EFG FILM-COATED TABLETS, 28 TABLETS
     Route: 048
     Dates: start: 20220622

REACTIONS (2)
  - Toxic skin eruption [Recovering/Resolving]
  - Dermatitis [Recovering/Resolving]

NARRATIVE: CASE EVENT DATE: 20240308
